FAERS Safety Report 26005888 (Version 1)
Quarter: 2025Q4

REPORT INFORMATION
  Report Type: Spontaneous
  Country: US (occurrence: None)
  Receive Date: 20251105
  Receipt Date: 20251105
  Transmission Date: 20260118
  Serious: Yes (Hospitalization)
  Sender: FDA-CTU
  Company Number: None

PATIENT
  Age: 73 Year
  Sex: Male

DRUGS (1)
  1. VENCLEXTA [Suspect]
     Active Substance: VENETOCLAX
     Indication: Philadelphia positive chronic myeloid leukaemia
     Dosage: FREQUENCY : DAILY;?
     Route: 048

REACTIONS (11)
  - Neuropathy peripheral [None]
  - Balance disorder [None]
  - Gait disturbance [None]
  - Muscular weakness [None]
  - Cough [None]
  - Secretion discharge [None]
  - Sinus operation [None]
  - Blood pressure fluctuation [None]
  - Hypoaesthesia [None]
  - Thrombosis [None]
  - Pain [None]
